FAERS Safety Report 7982086-0 (Version None)
Quarter: 2011Q4

REPORT INFORMATION
  Report Type: 
  Country: None (occurrence: None)
  Receive Date: 20111214
  Receipt Date: 20111214
  Transmission Date: 20120403
  Serious: Yes (Other)
  Sender: FDA-Public Use
  Company Number: None

PATIENT
  Age: 69 Year
  Sex: Female

DRUGS (11)
  1. REVLIMID [Suspect]
     Indication: MULTIPLE MYELOMA
     Dosage: REVLIMID 15 MG DAILY X14D/21D ORALLY
     Route: 048
     Dates: start: 20111101
  2. TRAMADOL HCL [Concomitant]
  3. WARFARIN SODIUM [Concomitant]
  4. HYDROCHLOROTHIAZIDE [Concomitant]
  5. SIMVASTATIN [Concomitant]
  6. BUPROPION HCL [Concomitant]
  7. OMEPRAZOLE [Concomitant]
  8. NORTRIPTYLINE HCL [Concomitant]
  9. CLONAZEPAM [Concomitant]
  10. HYDROCODONE BITARTRATE AND ACETAMINOPHEN [Concomitant]
  11. CITALOPRAM [Concomitant]

REACTIONS (2)
  - RASH [None]
  - PRURITUS [None]
